FAERS Safety Report 24763279 (Version 1)
Quarter: 2024Q4

REPORT INFORMATION
  Report Type: Spontaneous
  Country: US (occurrence: US)
  Receive Date: 20241222
  Receipt Date: 20241222
  Transmission Date: 20250114
  Serious: No
  Sender: ABBVIE
  Company Number: US-ABBVIE-6055976

PATIENT

DRUGS (1)
  1. LEXAPRO [Suspect]
     Active Substance: ESCITALOPRAM OXALATE
     Indication: Depression
     Route: 065

REACTIONS (7)
  - Abnormal dreams [Unknown]
  - Crying [Unknown]
  - Sleep disorder [Unknown]
  - Constipation [Unknown]
  - Anxiety [Unknown]
  - Memory impairment [Unknown]
  - Nightmare [Unknown]
